FAERS Safety Report 7767239-9 (Version None)
Quarter: 2011Q3

REPORT INFORMATION
  Report Type: 
  Country: None (occurrence: None)
  Receive Date: 20110922
  Receipt Date: 20110318
  Transmission Date: 20111222
  Serious: No
  Sender: FDA-Public Use
  Company Number: US-ASTRAZENECA-2007UW06189

PATIENT
  Age: 45 Year
  Sex: Female
  Weight: 86.6 kg

DRUGS (16)
  1. SEROQUEL [Suspect]
     Indication: PANIC DISORDER
     Route: 048
     Dates: start: 20050512
  2. ABILIFY [Concomitant]
     Dosage: 10 TO 20 MG
     Dates: start: 20050408
  3. LAMICTAL [Concomitant]
     Dates: start: 20050512
  4. GEODON [Concomitant]
  5. TRICOR [Concomitant]
     Dates: start: 20050512
  6. RISPERDAL [Concomitant]
  7. SEROQUEL [Suspect]
     Route: 048
     Dates: start: 20050501, end: 20060401
  8. GABAPENTIN [Concomitant]
  9. SEROQUEL [Suspect]
     Indication: AGORAPHOBIA
     Route: 048
     Dates: start: 20050512
  10. LEVOTHYROXINE SODIUM [Concomitant]
     Dates: start: 20050408
  11. PREMPRO [Concomitant]
     Dosage: 0.3/1 MG EZ-DL
     Dates: start: 20050512
  12. DEPAKOTE [Concomitant]
     Dates: start: 20050526
  13. SEROQUEL [Suspect]
     Indication: ANXIETY
     Route: 048
     Dates: start: 20050512
  14. SEROQUEL [Suspect]
     Route: 048
     Dates: start: 20050501, end: 20060401
  15. SEROQUEL [Suspect]
     Route: 048
     Dates: start: 20050501, end: 20060401
  16. KLONOPIN [Concomitant]

REACTIONS (5)
  - TYPE 2 DIABETES MELLITUS [None]
  - BLOOD CHOLESTEROL INCREASED [None]
  - BLOOD TRIGLYCERIDES INCREASED [None]
  - HYPERLIPIDAEMIA [None]
  - OBESITY [None]
